FAERS Safety Report 4781593-1 (Version None)
Quarter: 2005Q3

REPORT INFORMATION
  Report Type: 
  Country: None (occurrence: None)
  Receive Date: 20050927
  Receipt Date: 20050915
  Transmission Date: 20060218
  Serious: Yes (Other)
  Sender: FDA-Public Use
  Company Number: 2005130020

PATIENT
  Age: 4 Month
  Sex: Male
  Weight: 3.3566 kg

DRUGS (1)
  1. ZOLOFT [Suspect]
     Indication: ILL-DEFINED DISORDER
     Dosage: 100 MG (1 IN 1 D), PLACENTAL

REACTIONS (5)
  - DRUG EXPOSURE DURING PREGNANCY [None]
  - DRUG EXPOSURE VIA BREAST MILK [None]
  - DYSPNOEA [None]
  - NEONATAL DISORDER [None]
  - PYREXIA [None]
